FAERS Safety Report 7580605-X (Version None)
Quarter: 2011Q2

REPORT INFORMATION
  Report Type: 
  Country: None (occurrence: None)
  Receive Date: 20110629
  Receipt Date: 20110621
  Transmission Date: 20111010
  Serious: Yes (Death)
  Sender: FDA-Public Use
  Company Number: B0729245A

PATIENT

DRUGS (4)
  1. CEFTRIAXONE [Concomitant]
     Dates: start: 20101027, end: 20101102
  2. PIPERACILLIN AND TAZOBACTAM [Concomitant]
     Dates: start: 20101102, end: 20101103
  3. LANOXIN [Concomitant]
     Dates: start: 20101025, end: 20101102
  4. LAPATINIB [Suspect]
     Route: 048
     Dates: start: 20100924, end: 20101102

REACTIONS (1)
  - DEATH [None]
